FAERS Safety Report 4524862-2 (Version None)
Quarter: 2004Q4

REPORT INFORMATION
  Report Type: 
  Country: None (occurrence: None)
  Receive Date: 20041117
  Receipt Date: 20040106
  Transmission Date: 20050328
  Serious: Yes (Other)
  Sender: FDA-Public Use
  Company Number: 2004S1000031

PATIENT
  Age: 20 Year
  Sex: Female
  Weight: 73.4827 kg

DRUGS (6)
  1. CLOZAPINE [Suspect]
     Indication: SCHIZOAFFECTIVE DISORDER
     Dosage: 25MG QD, ORAL
     Route: 048
     Dates: start: 20031003
  2. CLOZAPINE [Suspect]
     Indication: SCHIZOPHRENIA
     Dosage: 25MG QD, ORAL
     Route: 048
     Dates: start: 20031003
  3. CLOZAPINE [Suspect]
     Indication: SCHIZOAFFECTIVE DISORDER
     Dosage: 300MG QD, ORAL
     Route: 048
     Dates: start: 20031003
  4. CLOZAPINE [Suspect]
     Indication: SCHIZOPHRENIA
     Dosage: 300MG QD, ORAL
     Route: 048
     Dates: start: 20031003
  5. BENZTROPINE MESYLATE [Concomitant]
  6. POLYETHYLENE GLYCOL-ELECTROLYTE SOLUTION [Concomitant]

REACTIONS (1)
  - ANTIPSYCHOTIC DRUG LEVEL BELOW THERAPEUTIC [None]
